FAERS Safety Report 12832976 (Version 3)
Quarter: 2017Q1

REPORT INFORMATION
  Report Type: Report from Study
  Country: ES (occurrence: ES)
  Receive Date: 20161010
  Receipt Date: 20170102
  Transmission Date: 20170428
  Serious: Yes (Hospitalization)
  Sender: FDA-Public Use
  Company Number: PHHY2016ES137224

PATIENT
  Age: 64 Year
  Sex: Female
  Weight: 68 kg

DRUGS (13)
  1. LETROZOLE. [Suspect]
     Active Substance: LETROZOLE
     Indication: BREAST CANCER
     Dosage: 2.5 MG, ONCE CYCLIC
     Route: 048
     Dates: start: 20110516, end: 20160428
  2. PALBOCICLIB [Suspect]
     Active Substance: PALBOCICLIB
     Route: 065
     Dates: start: 20160509
  3. LETROZOLE. [Suspect]
     Active Substance: LETROZOLE
     Dosage: UNK
     Route: 065
     Dates: start: 20160516
  4. IBUPROFEN. [Concomitant]
     Active Substance: IBUPROFEN
     Indication: OSTEONECROSIS
     Dosage: 600 MG, TID
     Route: 048
     Dates: start: 20140902
  5. PALBOCICLIB [Suspect]
     Active Substance: PALBOCICLIB
     Indication: BREAST CANCER
     Dosage: 125 MG, CYCLIC (3 WEEKS ON FOLLOWED BY 1 WEK OFF)
     Route: 048
     Dates: start: 20110516, end: 20160428
  6. PARACETAMOL [Concomitant]
     Active Substance: ACETAMINOPHEN
     Indication: OSTEONECROSIS
     Dosage: 1 G, UNK
     Route: 048
     Dates: start: 20151027
  7. ZOMETA [Suspect]
     Active Substance: ZOLEDRONIC ACID
     Indication: BONE LESION
     Dosage: 4 MG, QD
     Route: 042
     Dates: start: 20121002, end: 20140513
  8. NOLOTIL//METAMIZOLE MAGNESIUM [Concomitant]
     Active Substance: METAMIZOLE MAGNESIUM
     Indication: OSTEONECROSIS
     Dosage: 575 MG, TID
     Route: 048
     Dates: start: 20140902
  9. TARGIN [Concomitant]
     Active Substance: NALOXONE HYDROCHLORIDE\OXYCODONE HYDROCHLORIDE
     Indication: OSTEONECROSIS
     Dosage: 5 MG, BID
     Route: 048
     Dates: start: 20151103
  10. FENTANYL. [Concomitant]
     Active Substance: FENTANYL
     Indication: OSTEONECROSIS
     Route: 048
     Dates: start: 20160223
  11. ZOMETA [Suspect]
     Active Substance: ZOLEDRONIC ACID
     Indication: ARTHRALGIA
     Dosage: 4 MG, QD
     Route: 048
     Dates: start: 20110411, end: 20120904
  12. ENALAPRIL [Concomitant]
     Active Substance: ENALAPRIL
     Indication: HYPERTENSION
     Route: 048
  13. METFORMIN [Concomitant]
     Active Substance: METFORMIN HYDROCHLORIDE
     Indication: TYPE 2 DIABETES MELLITUS
     Dosage: 850 MG, TID
     Route: 048

REACTIONS (2)
  - Product use issue [Unknown]
  - Osteonecrosis of jaw [Recovered/Resolved]

NARRATIVE: CASE EVENT DATE: 20160419
